FAERS Safety Report 20219008 (Version 1)
Quarter: 2021Q4

REPORT INFORMATION
  Report Type: Spontaneous
  Country: US (occurrence: US)
  Receive Date: 20211222
  Receipt Date: 20211222
  Transmission Date: 20220303
  Serious: No
  Sender: FDA-Public Use
  Company Number: US-BIOHAVEN PHARMACEUTICALS-2021BHV01151

PATIENT
  Sex: Female
  Weight: 73.016 kg

DRUGS (8)
  1. NURTEC ODT [Suspect]
     Active Substance: RIMEGEPANT SULFATE
     Dosage: 75 MG, EVERY 48 HOURS?TREATMENT START STOP DATE:7-2021//
     Route: 048
     Dates: start: 202107
  2. TOPAMAX [Concomitant]
     Active Substance: TOPIRAMATE
  3. LAMOTRIGINE [Concomitant]
     Active Substance: LAMOTRIGINE
  4. SAVELLA [Concomitant]
     Active Substance: MILNACIPRAN HYDROCHLORIDE
  5. ATENOLOL [Concomitant]
     Active Substance: ATENOLOL
  6. LEVOTHYROXINE [Concomitant]
     Active Substance: LEVOTHYROXINE
  7. TRAZODONE [Concomitant]
     Active Substance: TRAZODONE HYDROCHLORIDE
  8. VITAMIN B12 [Concomitant]
     Active Substance: CYANOCOBALAMIN
     Dosage: TREATMENT START STOP DATE:7-2021//

REACTIONS (2)
  - Asthenia [Not Recovered/Not Resolved]
  - Nausea [Not Recovered/Not Resolved]

NARRATIVE: CASE EVENT DATE: 20210101
